FAERS Safety Report 6435766-2 (Version None)
Quarter: 2009Q4

REPORT INFORMATION
  Report Type: 
  Country: None (occurrence: None)
  Receive Date: 20091110
  Receipt Date: 20080716
  Transmission Date: 20100525
  Serious: No
  Sender: FDA-Public Use
  Company Number: AECAN200800155

PATIENT
  Age: 83 Year
  Sex: Male
  Weight: 70 kg

DRUGS (3)
  1. GAMUNEX [Suspect]
     Indication: SEPSIS
     Dosage: 5 GM;QD;IV
     Route: 042
     Dates: start: 20080628, end: 20080629
  2. IGIVNEX [Suspect]
     Indication: SEPSIS
     Dosage: 15 GM;QM;IV
     Route: 042
     Dates: start: 20080628, end: 20080629
  3. BLOOD TRANSFUSION, AUXILIARY PRODUCTS [Concomitant]

REACTIONS (6)
  - DYSPNOEA [None]
  - FLUID OVERLOAD [None]
  - HYPERTENSION [None]
  - INFUSION RELATED REACTION [None]
  - OXYGEN SATURATION DECREASED [None]
  - TACHYCARDIA [None]
